FAERS Safety Report 4949889-8 (Version None)
Quarter: 2006Q1

REPORT INFORMATION
  Report Type: 
  Country: None (occurrence: None)
  Receive Date: 20060315
  Receipt Date: 20060228
  Transmission Date: 20060701
  Serious: Yes (Other)
  Sender: FDA-Public Use
  Company Number: 2006-BP-02369RO

PATIENT
  Age: 50 Year
  Sex: Male

DRUGS (1)
  1. METHOTREXATE [Suspect]
     Indication: PUSTULAR PSORIASIS
     Dosage: 20 MG/WEEK (NR); PO
     Route: 048

REACTIONS (6)
  - AZOOSPERMIA [None]
  - BLOOD CREATININE INCREASED [None]
  - BREAST TENDERNESS [None]
  - DERMATITIS EXFOLIATIVE [None]
  - GYNAECOMASTIA [None]
  - TESTICULAR ATROPHY [None]
